FAERS Safety Report 7772769-X (Version None)
Quarter: 2011Q3

REPORT INFORMATION
  Report Type: 
  Country: None (occurrence: None)
  Receive Date: 20110922
  Receipt Date: 20100920
  Transmission Date: 20111222
  Serious: No
  Sender: FDA-Public Use
  Company Number: US-ASTRAZENECA-2010SE44326

PATIENT
  Sex: Female

DRUGS (8)
  1. SEROQUEL [Suspect]
     Indication: BIPOLAR DISORDER
     Route: 048
     Dates: start: 20070101
  2. SEROQUEL [Suspect]
     Route: 048
  3. FISH OIL [Concomitant]
     Route: 065
  4. KLONOPIN [Concomitant]
     Route: 065
  5. SEROQUEL [Suspect]
     Route: 048
  6. LAMICTAL [Concomitant]
     Route: 065
  7. ARICEPT [Concomitant]
     Route: 065
  8. LITHIUM [Concomitant]
     Route: 065

REACTIONS (3)
  - HEAD INJURY [None]
  - DIZZINESS [None]
  - FALL [None]
